FAERS Safety Report 6735067-9 (Version None)
Quarter: 2010Q2

REPORT INFORMATION
  Report Type: 
  Country: None (occurrence: None)
  Receive Date: 20100521
  Receipt Date: 20100510
  Transmission Date: 20101027
  Serious: Yes (Hospitalization)
  Sender: FDA-Public Use
  Company Number: DE-JNJFOC-20080102177

PATIENT
  Sex: Female
  Weight: 122.2 kg

DRUGS (90)
  1. GOLIMUMAB [Suspect]
     Indication: RHEUMATOID ARTHRITIS
     Dosage: WEEK 36
     Route: 058
  2. GOLIMUMAB [Suspect]
     Dosage: WEEK 48
     Route: 058
  3. GOLIMUMAB [Suspect]
     Dosage: WEEK 48
     Route: 058
  4. GOLIMUMAB [Suspect]
     Dosage: WEEK 48
     Route: 058
  5. GOLIMUMAB [Suspect]
     Dosage: WEEK 48
     Route: 058
  6. GOLIMUMAB [Suspect]
     Dosage: WEEK 44
     Route: 058
  7. GOLIMUMAB [Suspect]
     Dosage: WEEK 40
     Route: 058
  8. GOLIMUMAB [Suspect]
     Route: 058
  9. GOLIMUMAB [Suspect]
     Dosage: WEEK 32
     Route: 058
  10. GOLIMUMAB [Suspect]
     Dosage: WEEK 28
     Route: 058
  11. GOLIMUMAB [Suspect]
     Dosage: WEEK 24
     Route: 058
  12. GOLIMUMAB [Suspect]
     Dosage: WEEK 20
     Route: 058
  13. GOLIMUMAB [Suspect]
     Dosage: WEEK 20
     Route: 058
  14. GOLIMUMAB [Suspect]
     Dosage: WEEK 16
     Route: 058
  15. METHOTREXATE [Suspect]
     Indication: RHEUMATOID ARTHRITIS
     Dosage: WEEK 51
     Route: 048
  16. METHOTREXATE [Suspect]
     Dosage: WEEK 51
     Route: 048
  17. METHOTREXATE [Suspect]
     Dosage: WEEK 51
     Route: 048
  18. METHOTREXATE [Suspect]
     Dosage: WEEK 51
     Route: 048
  19. METHOTREXATE [Suspect]
     Dosage: WEEK 51
     Route: 048
  20. METHOTREXATE [Suspect]
     Dosage: WEEK 51
     Route: 048
  21. METHOTREXATE [Suspect]
     Dosage: WEEK 51
     Route: 048
  22. METHOTREXATE [Suspect]
     Dosage: WEEK 51
     Route: 048
  23. METHOTREXATE [Suspect]
     Dosage: WEEK 51
     Route: 048
  24. METHOTREXATE [Suspect]
     Dosage: WEEK 51
     Route: 048
  25. METHOTREXATE [Suspect]
     Dosage: WEEK 51
     Route: 048
  26. METHOTREXATE [Suspect]
     Dosage: WEEK 51
     Route: 048
  27. METHOTREXATE [Suspect]
     Dosage: WEEK 50
     Route: 048
  28. METHOTREXATE [Suspect]
     Dosage: WEEK 49
     Route: 048
  29. METHOTREXATE [Suspect]
     Dosage: WEEK 48
     Route: 048
  30. METHOTREXATE [Suspect]
     Dosage: WEEK 47
     Route: 048
  31. METHOTREXATE [Suspect]
     Dosage: WEEK 46
     Route: 048
  32. METHOTREXATE [Suspect]
     Dosage: WEEK 45
     Route: 048
  33. METHOTREXATE [Suspect]
     Dosage: WEEK 44
     Route: 048
  34. METHOTREXATE [Suspect]
     Dosage: WEEK 43
     Route: 048
  35. METHOTREXATE [Suspect]
     Dosage: WEEK 42
     Route: 048
  36. METHOTREXATE [Suspect]
     Dosage: WEEK 41
     Route: 048
  37. METHOTREXATE [Suspect]
     Dosage: WEEK 40
     Route: 048
  38. METHOTREXATE [Suspect]
     Dosage: WEEK 39
     Route: 048
  39. METHOTREXATE [Suspect]
     Dosage: WEEK 38
     Route: 048
  40. METHOTREXATE [Suspect]
     Dosage: WEEK 37
     Route: 048
  41. METHOTREXATE [Suspect]
     Dosage: WEEK 36
     Route: 048
  42. METHOTREXATE [Suspect]
     Dosage: WEEK 35
     Route: 048
  43. METHOTREXATE [Suspect]
     Dosage: WEEK 34
     Route: 048
  44. METHOTREXATE [Suspect]
     Dosage: WEEK 33
     Route: 048
  45. METHOTREXATE [Suspect]
     Dosage: WEEK 32
     Route: 048
  46. METHOTREXATE [Suspect]
     Dosage: WEEK 31
     Route: 048
  47. METHOTREXATE [Suspect]
     Dosage: WEEK 30
     Route: 048
  48. METHOTREXATE [Suspect]
     Dosage: WEEK 29
     Route: 048
  49. METHOTREXATE [Suspect]
     Dosage: WEEK 28
     Route: 048
  50. METHOTREXATE [Suspect]
     Dosage: WEEK 27
     Route: 048
  51. METHOTREXATE [Suspect]
     Dosage: WEEK 26
     Route: 048
  52. METHOTREXATE [Suspect]
     Dosage: WEEK 25
     Route: 048
  53. METHOTREXATE [Suspect]
     Dosage: WEEK 24
     Route: 048
  54. METHOTREXATE [Suspect]
     Dosage: WEEK 23
     Route: 048
  55. METHOTREXATE [Suspect]
     Dosage: WEEK 22
     Route: 048
  56. METHOTREXATE [Suspect]
     Dosage: WEEK 21
     Route: 048
  57. METHOTREXATE [Suspect]
     Dosage: WEEK 20
     Route: 048
  58. METHOTREXATE [Suspect]
     Dosage: WEEK 19
     Route: 048
  59. METHOTREXATE [Suspect]
     Dosage: WEEK 18
     Route: 048
  60. METHOTREXATE [Suspect]
     Dosage: WEEK 17
     Route: 048
  61. METHOTREXATE [Suspect]
     Dosage: WEEK 16
     Route: 048
  62. METHOTREXATE [Suspect]
     Dosage: WEEK 15
     Route: 048
  63. METHOTREXATE [Suspect]
     Dosage: WEEK 14
     Route: 048
  64. METHOTREXATE [Suspect]
     Dosage: WEEK 13
     Route: 048
  65. METHOTREXATE [Suspect]
     Dosage: WEEK 12
     Route: 048
  66. METHOTREXATE [Suspect]
     Dosage: WEEK 11
     Route: 048
  67. METHOTREXATE [Suspect]
     Dosage: WEEK 10
     Route: 048
  68. METHOTREXATE [Suspect]
     Dosage: WEEK 9
     Route: 048
  69. METHOTREXATE [Suspect]
     Dosage: WEEK 8
     Route: 048
  70. METHOTREXATE [Suspect]
     Dosage: WEEK 7
     Route: 048
  71. METHOTREXATE [Suspect]
     Dosage: WEEK 6
     Route: 048
  72. METHOTREXATE [Suspect]
     Dosage: WEEK 5
     Route: 048
  73. METHOTREXATE [Suspect]
     Dosage: WEEK 4
     Route: 048
  74. METHOTREXATE [Suspect]
     Dosage: WEEK 3
     Route: 048
  75. METHOTREXATE [Suspect]
     Dosage: WEEK 2
     Route: 048
  76. METHOTREXATE [Suspect]
     Dosage: WEEK 1
     Route: 048
  77. METHOTREXATE [Suspect]
     Dosage: WEEK 0
     Route: 048
  78. METHOTREXATE [Suspect]
     Dosage: WEEK 0, -1 WEEK, ACTIVE DRUG.
     Route: 048
  79. METHOTREXATE [Suspect]
     Dosage: WEEK 0, -2 WEEKS, ACTIVE DRUG.
     Route: 048
  80. METHOTREXATE [Suspect]
     Dosage: WEEK 0, -3 WEEKS, ACTIVE DRUG.
     Route: 048
  81. METHOTREXATE [Suspect]
     Dosage: WEEK 0, -4 WEEKS, ACTIVE DRUG.
     Route: 048
  82. FOLCUR [Concomitant]
     Route: 048
  83. AMITRYPTYLIN [Concomitant]
     Route: 048
  84. ENALAPRIL [Concomitant]
     Route: 048
  85. TRAMAL (LONG RET) [Concomitant]
     Route: 048
  86. VIDISEPT [Concomitant]
     Route: 047
  87. OMEPRAZOLE [Concomitant]
     Route: 047
  88. ACETAMINOPHEN [Concomitant]
     Route: 048
  89. ZOPICLODURA [Concomitant]
     Route: 048
  90. PREDNISOLONE [Concomitant]
     Route: 048

REACTIONS (3)
  - PNEUMONIA [None]
  - PYOTHORAX [None]
  - SEPSIS [None]
